FAERS Safety Report 16379338 (Version 1)
Quarter: 2019Q2

REPORT INFORMATION
  Report Type: Spontaneous
  Country: DE (occurrence: DE)
  Receive Date: 20190531
  Receipt Date: 20190531
  Transmission Date: 20190711
  Serious: Yes (Other)
  Sender: FDA-Public Use
  Company Number: DE-BAYER-2019-074595

PATIENT
  Age: 25 Year
  Sex: Female

DRUGS (1)
  1. JAYDESS [Suspect]
     Active Substance: LEVONORGESTREL
     Dosage: 14 MCG/24HR, CONT
     Route: 015
     Dates: start: 20180919, end: 20190410

REACTIONS (5)
  - Micturition urgency [None]
  - Product contamination microbial [None]
  - Staphylococcus test positive [None]
  - Ligamentitis [None]
  - Back pain [None]

NARRATIVE: CASE EVENT DATE: 201810
